FAERS Safety Report 12416277 (Version 2)
Quarter: 2016Q3

REPORT INFORMATION
  Report Type: Spontaneous
  Country: JP (occurrence: JP)
  Receive Date: 20160530
  Receipt Date: 20160727
  Transmission Date: 20161109
  Serious: Yes (Hospitalization)
  Sender: FDA-Public Use
  Company Number: JP-PFIZER INC-2016211432

PATIENT
  Age: 77 Year
  Sex: Male
  Weight: 53 kg

DRUGS (15)
  1. REBAMIPIDE [Concomitant]
     Active Substance: REBAMIPIDE
     Dosage: 300 MG, DAILY
     Route: 048
  2. LASIX [Concomitant]
     Active Substance: FUROSEMIDE
     Dosage: 40 MG, DAILY
     Route: 048
  3. BLOPRESS [Concomitant]
     Active Substance: CANDESARTAN CILEXETIL
     Dosage: 8 MG, DAILY
     Route: 048
  4. NEOJODIN [Concomitant]
     Dosage: UNK
  5. CRAVIT [Concomitant]
     Active Substance: LEVOFLOXACIN
     Indication: PNEUMONIA
     Dosage: 500 MG, DAILY
     Route: 041
     Dates: start: 20160331
  6. MUCODYNE [Concomitant]
     Active Substance: CARBOCYSTEINE
     Dosage: 750 MG, DAILY
     Route: 048
  7. HIRUDOID [Concomitant]
     Active Substance: GLYCOSAMINOGLYCANS
     Dosage: UNK
     Route: 061
  8. RINDERON VG [Concomitant]
     Active Substance: BETAMETHASONE VALERATE\GENTAMICIN SULFATE
     Dosage: UNK
     Route: 061
  9. NEOPHYLLIN /00003701/ [Concomitant]
     Dosage: UNK
  10. ZOSYN [Suspect]
     Active Substance: PIPERACILLIN SODIUM\TAZOBACTAM SODIUM
     Indication: PNEUMONIA
     Dosage: 4.5 G, 2X/DAY
     Route: 041
     Dates: start: 20160323, end: 20160329
  11. MEROPEN /01250501/ [Suspect]
     Active Substance: MEROPENEM
     Indication: PNEUMONIA
     Dosage: 2 G, DAILY
     Route: 041
     Dates: start: 20160330, end: 20160330
  12. PERDIPINE [Concomitant]
     Active Substance: NICARDIPINE HYDROCHLORIDE
     Dosage: 30 MG, DAILY
     Route: 048
  13. HOKUNALIN /00654901/ [Concomitant]
     Active Substance: TULOBUTEROL
     Dosage: 2 MG, DAILY
     Route: 047
  14. FEBURIC [Concomitant]
     Active Substance: FEBUXOSTAT
     Dosage: 20 MG, DAILY
     Route: 048
  15. INTAL [Concomitant]
     Active Substance: CROMOLYN SODIUM
     Dosage: UNK
     Route: 031

REACTIONS (1)
  - Drug eruption [Recovering/Resolving]

NARRATIVE: CASE EVENT DATE: 20160330
